FAERS Safety Report 11194978 (Version 1)
Quarter: 2015Q2

REPORT INFORMATION
  Report Type: Spontaneous
  Country: US (occurrence: None)
  Receive Date: 20150615
  Receipt Date: 20150615
  Transmission Date: 20150821
  Serious: No
  Sender: FDA-Public Use
  Company Number: None

PATIENT
  Age: 57 Year
  Sex: Male
  Weight: 101 kg

DRUGS (12)
  1. LEVOFLOXACIN. [Suspect]
     Active Substance: LEVOFLOXACIN
     Indication: POSTOPERATIVE CARE
     Route: 042
     Dates: start: 20150609, end: 20150609
  2. LEVOFLOXACIN. [Suspect]
     Active Substance: LEVOFLOXACIN
     Indication: ANAL ABSCESS
     Route: 042
     Dates: start: 20150609, end: 20150609
  3. METRONIDAZOLE PREMIX [Concomitant]
  4. IVPB [Concomitant]
  5. LIDOCAINE. [Concomitant]
     Active Substance: LIDOCAINE
  6. ULTANE [Concomitant]
     Active Substance: SEVOFLURANE
  7. FENTANYL. [Concomitant]
     Active Substance: FENTANYL
  8. MIDAZOLAM [Concomitant]
     Active Substance: MIDAZOLAM\MIDAZOLAM HYDROCHLORIDE
  9. PROPOFOL. [Concomitant]
     Active Substance: PROPOFOL
  10. ONDANSETRON [Concomitant]
     Active Substance: ONDANSETRON
  11. ROCURONIUM [Concomitant]
     Active Substance: ROCURONIUM BROMIDE
  12. SUCCINYLCHOLINE [Concomitant]
     Active Substance: SUCCINYLCHOLINE

REACTIONS (4)
  - Pruritus [None]
  - Oral pruritus [None]
  - Throat irritation [None]
  - Urticaria [None]

NARRATIVE: CASE EVENT DATE: 20150609
